FAERS Safety Report 4982301-1 (Version None)
Quarter: 2006Q2

REPORT INFORMATION
  Report Type: 
  Country: None (occurrence: None)
  Receive Date: 20060425
  Receipt Date: 20060413
  Transmission Date: 20061013
  Serious: Yes (Hospitalization)
  Sender: FDA-Public Use
  Company Number: SE-ROCHE-444192

PATIENT
  Age: 58 Year
  Sex: Female

DRUGS (4)
  1. XENICAL [Suspect]
     Indication: OBESITY
     Route: 048
     Dates: start: 20060329, end: 20060331
  2. SALURES [Concomitant]
  3. FURIX [Concomitant]
  4. ATENOLOL [Concomitant]
     Dosage: DRUG NAME: ATENOLOL COPYPHARM.
     Route: 048

REACTIONS (2)
  - SYNCOPE [None]
  - VOMITING [None]
